FAERS Safety Report 6772571-1 (Version None)
Quarter: 2010Q2

REPORT INFORMATION
  Report Type: 
  Country: None (occurrence: None)
  Receive Date: 20100616
  Receipt Date: 20100309
  Transmission Date: 20101027
  Serious: No
  Sender: FDA-Public Use
  Company Number: US-ASTRAZENECA-2010SE10279

PATIENT
  Age: 89 Year
  Sex: Female
  Weight: 46.7 kg

DRUGS (4)
  1. PULMICORT [Suspect]
     Indication: DYSPNOEA
     Route: 055
  2. PULMICORT [Suspect]
     Indication: WHEEZING
     Route: 055
  3. XOPENEX [Suspect]
     Indication: DYSPNOEA
     Route: 055
     Dates: start: 20091101, end: 20090101
  4. XOPENEX [Suspect]
     Indication: WHEEZING
     Route: 055
     Dates: start: 20091101, end: 20090101

REACTIONS (1)
  - FATIGUE [None]
